FAERS Safety Report 16318263 (Version 1)
Quarter: 2019Q2

REPORT INFORMATION
  Report Type: Report from Study
  Country: DE (occurrence: DE)
  Receive Date: 20190516
  Receipt Date: 20190516
  Transmission Date: 20190711
  Serious: Yes (Other)
  Sender: FDA-Public Use
  Company Number: DE-ROCHE-2009579

PATIENT
  Age: 72 Year
  Sex: Female

DRUGS (20)
  1. BISOPROLOL [Concomitant]
     Active Substance: BISOPROLOL
     Indication: HYPERTENSION
     Route: 048
     Dates: start: 20060221
  2. RANITIDINE. [Concomitant]
     Active Substance: RANITIDINE
     Route: 042
     Dates: start: 20130117, end: 20130503
  3. VITAMIN C [Concomitant]
     Active Substance: ASCORBIC ACID
     Indication: GENERAL PHYSICAL HEALTH DETERIORATION
     Route: 042
     Dates: start: 20140202, end: 20140215
  4. TAVEGIL [CLEMASTINE] [Concomitant]
     Active Substance: CLEMASTINE
     Route: 042
  5. PANTOZOL [Concomitant]
     Active Substance: PANTOPRAZOLE SODIUM
     Route: 042
     Dates: start: 20140205, end: 20140215
  6. AMBROXOL [Concomitant]
     Active Substance: AMBROXOL
     Route: 048
     Dates: start: 20140203, end: 20140215
  7. RAMIPRIL. [Concomitant]
     Active Substance: RAMIPRIL
     Indication: HYPERTENSION
     Dosage: 5/12,5 MG
     Route: 048
     Dates: start: 20130121
  8. TRANXILIUM [Concomitant]
     Active Substance: CLORAZEPATE DIPOTASSIUM
     Dosage: SLEEP DISORDERS
     Route: 048
     Dates: start: 20130321
  9. CODEINE [Concomitant]
     Active Substance: CODEINE
     Indication: COUGH
     Route: 048
     Dates: start: 20130820, end: 20130926
  10. VITAMIN C [Concomitant]
     Active Substance: ASCORBIC ACID
     Route: 042
     Dates: start: 20141106, end: 20141116
  11. CANDESARTAN. [Concomitant]
     Active Substance: CANDESARTAN
     Indication: HYPERTENSION
     Dosage: 8/6,25 MG
     Route: 048
     Dates: start: 20140203, end: 20140215
  12. FORMOTOP [Concomitant]
     Active Substance: FORMOTEROL FUMARATE
     Indication: COUGH
     Route: 065
     Dates: start: 20140703
  13. BEVACIZUMAB. [Suspect]
     Active Substance: BEVACIZUMAB
     Indication: BREAST CANCER
     Dosage: ON 23/OCT/2014, RECEIVED IV BEVACIZUMAB 780 MG
     Route: 042
     Dates: start: 20130317
  14. VITAMIN B6 [Concomitant]
     Active Substance: PYRIDOXINE HYDROCHLORIDE
     Indication: GENERAL PHYSICAL HEALTH DETERIORATION
     Route: 042
     Dates: start: 20140202, end: 20140215
  15. VITAMIN B6 [Concomitant]
     Active Substance: PYRIDOXINE HYDROCHLORIDE
     Route: 042
     Dates: start: 20141106, end: 20141116
  16. PACLITAXEL. [Concomitant]
     Active Substance: PACLITAXEL
     Indication: BREAST CANCER
     Dosage: ON  07/FEB/2013 RECEIVED PACLITAXEL (175 MG/M2) AND ON 28/FEB/2013, 21/MAR/2013, 11/APR/2013, 02/MAY
     Route: 042
     Dates: start: 20130117
  17. ONDANSETRON [Concomitant]
     Active Substance: ONDANSETRON
     Dosage: ANTIEMETIC
     Route: 042
     Dates: start: 20130117, end: 20130503
  18. CAPECITABINE. [Suspect]
     Active Substance: CAPECITABINE
     Indication: BREAST CANCER
     Dosage: 1300-2000 MG 14 DAY CYCLE WITH 1 WEEK BREAK
     Route: 048
     Dates: start: 20140217, end: 20140827
  19. HUMAN-ALBUMIN [Concomitant]
     Indication: ASCITES
     Route: 042
     Dates: start: 20141107, end: 20141112
  20. DIAZEPAM. [Concomitant]
     Active Substance: DIAZEPAM
     Route: 048
     Dates: start: 20130121

REACTIONS (16)
  - Metastases to peritoneum [Not Recovered/Not Resolved]
  - Sleep disorder [Unknown]
  - Skin exfoliation [Recovered/Resolved]
  - Abdominal pain upper [Recovered/Resolved]
  - Basal cell carcinoma [Not Recovered/Not Resolved]
  - Dyspnoea [Recovering/Resolving]
  - Aspartate aminotransferase increased [Not Recovered/Not Resolved]
  - Decreased appetite [Not Recovered/Not Resolved]
  - Constipation [Recovered/Resolved]
  - Palmar-plantar erythrodysaesthesia syndrome [Recovering/Resolving]
  - Dry mouth [Unknown]
  - Dyspepsia [Recovered/Resolved]
  - Spinal pain [Recovering/Resolving]
  - Dry skin [Unknown]
  - Erythema [Recovered/Resolved]
  - Oropharyngeal pain [Recovered/Resolved]

NARRATIVE: CASE EVENT DATE: 20130321
